FAERS Safety Report 23144840 (Version 1)
Quarter: 2023Q4

REPORT INFORMATION
  Report Type: Spontaneous
  Country: CN (occurrence: None)
  Receive Date: 20231103
  Receipt Date: 20231103
  Transmission Date: 20240110
  Serious: Yes (Life-Threatening, Hospitalization)
  Sender: FDA-Public Use
  Company Number: 2023A250320

PATIENT
  Age: 48 Year
  Sex: Female
  Weight: 48 kg

DRUGS (4)
  1. ESOMEPRAZOLE MAGNESIUM [Suspect]
     Active Substance: ESOMEPRAZOLE\ESOMEPRAZOLE MAGNESIUM\ESOMEPRAZOLE MAGNESIUM DIHYDRATE
     Indication: Sleep disorder
     Route: 048
     Dates: start: 20230808, end: 20230915
  2. ESOMEPRAZOLE MAGNESIUM [Suspect]
     Active Substance: ESOMEPRAZOLE\ESOMEPRAZOLE MAGNESIUM\ESOMEPRAZOLE MAGNESIUM DIHYDRATE
     Indication: Chronic gastritis
     Route: 048
     Dates: start: 20230808, end: 20230915
  3. DIETARY SUPPLEMENT\PROBIOTICS [Suspect]
     Active Substance: DIETARY SUPPLEMENT\PROBIOTICS NOS
     Indication: Sleep disorder
     Route: 048
     Dates: start: 20230808, end: 20230915
  4. DIETARY SUPPLEMENT\PROBIOTICS [Suspect]
     Active Substance: DIETARY SUPPLEMENT\PROBIOTICS NOS
     Indication: Chronic gastritis
     Route: 048
     Dates: start: 20230808, end: 20230915

REACTIONS (3)
  - Hepatic function abnormal [Recovering/Resolving]
  - Hepatic failure [Unknown]
  - Asthenia [Unknown]

NARRATIVE: CASE EVENT DATE: 20230910
